FAERS Safety Report 5068111-8 (Version None)
Quarter: 2006Q3

REPORT INFORMATION
  Report Type: 
  Country: None (occurrence: None)
  Receive Date: 20060731
  Receipt Date: 20060720
  Transmission Date: 20061208
  Serious: Yes (Disabling, Other)
  Sender: FDA-Public Use
  Company Number: OSCN-PR-0607S-0199

PATIENT
  Age: 30 Year
  Sex: Female

DRUGS (1)
  1. OMNISCAN [Suspect]
     Indication: DRUG USE FOR UNKNOWN INDICATION
     Dosage: SINGLE DOSE, I.V.
     Route: 042
     Dates: start: 20060101, end: 20060101

REACTIONS (1)
  - FIBROSIS [None]
